FAERS Safety Report 8006876-3 (Version None)
Quarter: 2011Q4

REPORT INFORMATION
  Report Type: 
  Country: None (occurrence: None)
  Receive Date: 20111123
  Receipt Date: 20110920
  Transmission Date: 20120403
  Serious: No
  Sender: FDA-Public Use
  Company Number: 332470

PATIENT
  Age: 76 Year
  Sex: Female

DRUGS (1)
  1. VICTOZA [Suspect]
     Indication: TYPE 2 DIABETES MELLITUS
     Dosage: 1.8 MG, SUBCUTANEOUS
     Route: 058
     Dates: start: 20110301

REACTIONS (4)
  - DIZZINESS [None]
  - INCREASED APPETITE [None]
  - BLOOD GLUCOSE DECREASED [None]
  - HOT FLUSH [None]
